FAERS Safety Report 4909006-7 (Version None)
Quarter: 2006Q1

REPORT INFORMATION
  Report Type: 
  Country: None (occurrence: None)
  Receive Date: 20060213
  Receipt Date: 20060206
  Transmission Date: 20060701
  Serious: Yes (Hospitalization)
  Sender: FDA-Public Use
  Company Number: SE-BOEHRINGER INGELHEIM PHARMACEUTICALS, INC.-2006-SW-00062SW

PATIENT
  Sex: Male

DRUGS (4)
  1. PERSANTIN [Suspect]
     Indication: CEREBRAL THROMBOSIS
     Route: 048
     Dates: end: 20051031
  2. OMEPRAZOLE [Concomitant]
  3. SIMVASTATIN [Concomitant]
  4. NOVOMIX 30 FLEXIPEN [Concomitant]
     Indication: DIABETES MELLITUS

REACTIONS (4)
  - ESCHERICHIA INFECTION [None]
  - SUPRAVENTRICULAR TACHYCARDIA [None]
  - SYNCOPE [None]
  - UROSEPSIS [None]
